FAERS Safety Report 10066177 (Version 1)
Quarter: 2014Q2

REPORT INFORMATION
  Report Type: Report from Study
  Country: US (occurrence: US)
  Receive Date: 20140408
  Receipt Date: 20140408
  Transmission Date: 20141212
  Serious: Yes (Hospitalization)
  Sender: FDA-Public Use
  Company Number: GXBR2014US001022

PATIENT
  Sex: Female

DRUGS (1)
  1. ENOXAPARIN SODIUM [Suspect]
     Indication: ANTICOAGULANT THERAPY
     Dosage: 100 MG, QD
     Route: 058

REACTIONS (4)
  - Staphylococcal infection [Unknown]
  - Streptococcal infection [Unknown]
  - Nosocomial infection [Unknown]
  - Rash [Unknown]
